FAERS Safety Report 15900150 (Version 1)
Quarter: 2019Q1

REPORT INFORMATION
  Report Type: Spontaneous
  Country: US (occurrence: US)
  Receive Date: 20190201
  Receipt Date: 20190201
  Transmission Date: 20190417
  Serious: No
  Sender: FDA-Public Use
  Company Number: US-BAYER-2018-231424

PATIENT
  Age: 42 Year
  Sex: Male
  Weight: 125 kg

DRUGS (5)
  1. MIRALAX [Suspect]
     Active Substance: POLYETHYLENE GLYCOL 3350
     Indication: FAECES HARD
     Dosage: UNK
     Route: 048
  2. MIRALAX [Suspect]
     Active Substance: POLYETHYLENE GLYCOL 3350
     Indication: FAECES HARD
     Dosage: 1 DF, 5IW
     Route: 048
     Dates: start: 201812
  3. MIRALAX [Suspect]
     Active Substance: POLYETHYLENE GLYCOL 3350
     Indication: FAECES HARD
     Dosage: 1 DF, 5IW
     Route: 048
  4. MIRALAX [Suspect]
     Active Substance: POLYETHYLENE GLYCOL 3350
     Indication: FAECES HARD
     Dosage: 1 DF, 5IW
     Route: 048
  5. MIRALAX [Suspect]
     Active Substance: POLYETHYLENE GLYCOL 3350
     Indication: FAECES HARD
     Dosage: 1 DF, 5IW
     Route: 048
     Dates: start: 201812, end: 201812

REACTIONS (4)
  - Product odour abnormal [None]
  - Drug ineffective for unapproved indication [Unknown]
  - Off label use [Unknown]
  - Product taste abnormal [None]

NARRATIVE: CASE EVENT DATE: 201812
